FAERS Safety Report 4303272-7 (Version None)
Quarter: 2004Q1

REPORT INFORMATION
  Report Type: 
  Country: None (occurrence: None)
  Receive Date: 20040223
  Receipt Date: 20040205
  Transmission Date: 20041129
  Serious: Yes (Hospitalization)
  Sender: FDA-Public Use
  Company Number: DSA_23880_2004

PATIENT
  Age: 41 Year
  Sex: Male

DRUGS (3)
  1. LORAZEPAM [Suspect]
     Dates: start: 20040115, end: 20040115
  2. REMERGIL [Suspect]
     Dates: start: 20040115, end: 20040115
  3. METOPROLOL [Suspect]
     Dates: start: 20040115, end: 20040115

REACTIONS (5)
  - AGITATION [None]
  - BLOOD PRESSURE SYSTOLIC DECREASED [None]
  - HYPOTENSION [None]
  - INTENTIONAL OVERDOSE [None]
  - MULTIPLE DRUG OVERDOSE [None]
